FAERS Safety Report 7818966-6 (Version None)
Quarter: 2011Q4

REPORT INFORMATION
  Report Type: 
  Country: None (occurrence: None)
  Receive Date: 20111017
  Receipt Date: 20111017
  Transmission Date: 20120403
  Serious: Yes (Other)
  Sender: FDA-Public Use
  Company Number: None

PATIENT
  Age: 44 Year
  Sex: Female

DRUGS (1)
  1. AVONEX [Suspect]
     Indication: RHEUMATOID ARTHRITIS
     Dosage: 30MCG Q IM
     Route: 030
     Dates: start: 20100930

REACTIONS (2)
  - MUSCULAR WEAKNESS [None]
  - MUSCLE FATIGUE [None]
